FAERS Safety Report 17015812 (Version 1)
Quarter: 2019Q4

REPORT INFORMATION
  Report Type: Spontaneous
  Country: US (occurrence: US)
  Receive Date: 20191111
  Receipt Date: 20191111
  Transmission Date: 20200122
  Serious: Yes (Other)
  Sender: FDA-Public Use
  Company Number: US-ELI_LILLY_AND_COMPANY-US201910015904

PATIENT
  Age: 47 Year
  Sex: Male

DRUGS (2)
  1. CIALIS [Suspect]
     Active Substance: TADALAFIL
     Indication: ERECTILE DYSFUNCTION
     Dosage: 5 MG, 1-2X PER WEEK
     Route: 065
     Dates: start: 2004, end: 2010
  2. VIAGRA [Suspect]
     Active Substance: SILDENAFIL CITRATE
     Indication: ERECTILE DYSFUNCTION
     Dosage: 100 MG, 1-2X PER WEEK
     Route: 065
     Dates: start: 200204, end: 200412

REACTIONS (1)
  - Lentigo maligna [Unknown]

NARRATIVE: CASE EVENT DATE: 20030422
